FAERS Safety Report 8130107-7 (Version None)
Quarter: 2012Q1

REPORT INFORMATION
  Report Type: 
  Country: None (occurrence: None)
  Receive Date: 20120210
  Receipt Date: 20120202
  Transmission Date: 20120608
  Serious: Yes (Death, Other)
  Sender: FDA-Public Use
  Company Number: ES-CELGENEUS-144-C5013-11090374

PATIENT
  Sex: Male

DRUGS (12)
  1. LENALIDOMIDE [Suspect]
     Route: 048
     Dates: end: 20110125
  2. DEXAMETHASONE [Suspect]
     Dosage: 20 MILLIGRAM
     Route: 065
     Dates: start: 20101201, end: 20101221
  3. LENALIDOMIDE [Suspect]
     Indication: MULTIPLE MYELOMA
     Route: 048
     Dates: start: 20070924
  4. VESICUR [Concomitant]
     Route: 065
     Dates: start: 20100101, end: 20100101
  5. TAMSULOSIN HCL [Concomitant]
     Route: 065
     Dates: start: 20080901
  6. LENALIDOMIDE [Suspect]
     Dosage: 25 MILLIGRAM
     Route: 048
     Dates: start: 20101201, end: 20101221
  7. FLECAINAMIDE [Concomitant]
     Indication: WOLFF-PARKINSON-WHITE SYNDROME
     Route: 065
  8. VESICUR [Concomitant]
     Route: 065
     Dates: start: 20080901
  9. VESICUR [Concomitant]
     Route: 065
     Dates: start: 20090827, end: 20091003
  10. DEXAMETHASONE [Suspect]
     Route: 065
     Dates: start: 20110907, end: 20110928
  11. DEXAMETHASONE [Suspect]
     Indication: MULTIPLE MYELOMA
     Route: 065
  12. BORTEZOMIB [Concomitant]
     Indication: MULTIPLE MYELOMA
     Route: 065
     Dates: start: 20110907, end: 20110928

REACTIONS (1)
  - BLADDER CANCER STAGE IV [None]
